FAERS Safety Report 6131617-4 (Version None)
Quarter: 2009Q1

REPORT INFORMATION
  Report Type: 
  Country: None (occurrence: None)
  Receive Date: 20090325
  Receipt Date: 20090105
  Transmission Date: 20090719
  Serious: Yes (Life-Threatening, Other)
  Sender: FDA-Public Use
  Company Number: US-BRISTOL-MYERS SQUIBB COMPANY-14427595

PATIENT
  Age: 61 Year
  Sex: Male

DRUGS (6)
  1. ERBITUX [Suspect]
     Indication: COLON CANCER
     Dosage: 100MG TEST DOSE
     Route: 042
     Dates: start: 20081013, end: 20081013
  2. DECADRON [Concomitant]
     Route: 042
  3. RANITIDINE [Concomitant]
     Route: 042
  4. ALBUTEROL [Concomitant]
  5. DIPHENHYDRAMINE [Concomitant]
     Route: 042
  6. ALOXI [Concomitant]
     Dosage: IVP
     Route: 042

REACTIONS (1)
  - INFUSION RELATED REACTION [None]
